FAERS Safety Report 22011877 (Version 4)
Quarter: 2024Q1

REPORT INFORMATION
  Report Type: Spontaneous
  Country: US (occurrence: US)
  Receive Date: 20230220
  Receipt Date: 20240220
  Transmission Date: 20240410
  Serious: No
  Sender: FDA-Public Use
  Company Number: US-PFIZER INC-PV202300031010

PATIENT
  Age: 72 Year
  Sex: Female

DRUGS (2)
  1. IBRANCE [Suspect]
     Active Substance: PALBOCICLIB
     Indication: Breast cancer metastatic
     Dosage: 75 MG
     Dates: start: 202002
  2. LETROZOLE [Suspect]
     Active Substance: LETROZOLE
     Indication: Breast cancer metastatic
     Dosage: UNK
     Dates: start: 202002

REACTIONS (9)
  - Alopecia [Unknown]
  - Diarrhoea [Unknown]
  - Product administration error [Unknown]
  - Product storage error [Unknown]
  - Fatigue [Unknown]
  - Neoplasm progression [Not Recovered/Not Resolved]
  - Arthropathy [Unknown]
  - Bursitis [Recovering/Resolving]
  - Aphonia [Not Recovered/Not Resolved]

NARRATIVE: CASE EVENT DATE: 20210201
